FAERS Safety Report 18066256 (Version 1)
Quarter: 2020Q3

REPORT INFORMATION
  Report Type: Spontaneous
  Country: US (occurrence: US)
  Receive Date: 20200724
  Receipt Date: 20200724
  Transmission Date: 20201103
  Serious: Yes (Hospitalization)
  Sender: FDA-Public Use
  Company Number: None

PATIENT
  Age: 72 Year
  Sex: Male
  Weight: 86 kg

DRUGS (3)
  1. DOCETAXEL. [Suspect]
     Active Substance: DOCETAXEL
  2. ABIRATERONE. [Suspect]
     Active Substance: ABIRATERONE ACETATE
     Indication: PROSTATE CANCER
     Dates: start: 20200715, end: 20200722
  3. APALUTAMIDE [Suspect]
     Active Substance: APALUTAMIDE

REACTIONS (3)
  - Urinary tract infection [None]
  - Therapy interrupted [None]
  - Pyrexia [None]

NARRATIVE: CASE EVENT DATE: 20200722
